FAERS Safety Report 4359837-X (Version None)
Quarter: 2004Q2

REPORT INFORMATION
  Report Type: 
  Country: None (occurrence: None)
  Receive Date: 20040514
  Receipt Date: 20040429
  Transmission Date: 20050107
  Serious: Yes (Other)
  Sender: FDA-Public Use
  Company Number: 2004015885

PATIENT
  Sex: Female
  Weight: 122.4712 kg

DRUGS (8)
  1. TIKOSYN [Suspect]
     Indication: ATRIAL FIBRILLATION
     Dosage: 1000 MCG (500 MCG, 2 IN 1 D), ORAL
     Route: 048
     Dates: start: 20020401
  2. HYALURONATE SODIUM (HYALURONATE SODIUM) [Suspect]
     Indication: ARTHRITIS
     Dosage: INTRASYNOVIAL
     Route: 035
  3. SPIRONOLACTONE [Concomitant]
  4. TORSEMIDE [Concomitant]
  5. DILTIAZEM HYDROCHLORIDE [Concomitant]
  6. POTASSIUM (POTASSIUM) [Concomitant]
  7. WARFARIN SODIUM [Concomitant]
  8. ALL OTHER THERAPEUTIC PRODUCTS (ALL OTHER THERAPEUTIC PRODUCTS) [Concomitant]

REACTIONS (3)
  - ABASIA [None]
  - BLOOD CHOLESTEROL INCREASED [None]
  - LOCALISED OSTEOARTHRITIS [None]
